FAERS Safety Report 10868762 (Version 1)
Quarter: 2015Q1

REPORT INFORMATION
  Report Type: Spontaneous
  Country: US (occurrence: US)
  Receive Date: 20150225
  Receipt Date: 20150225
  Transmission Date: 20150721
  Serious: Yes (Hospitalization)
  Sender: FDA-Public Use
  Company Number: US-ABBVIE-15P-163-1351364-00

PATIENT
  Sex: Female

DRUGS (1)
  1. SYNTHROID [Suspect]
     Active Substance: LEVOTHYROXINE SODIUM
     Indication: HYPOTHYROIDISM
     Route: 065
     Dates: start: 1975, end: 1980

REACTIONS (9)
  - Skin ulcer [Not Recovered/Not Resolved]
  - Allergy to chemicals [Not Recovered/Not Resolved]
  - Cellulitis [Recovered/Resolved]
  - Rash [Recovered/Resolved]
  - Dysphonia [Not Recovered/Not Resolved]
  - Goitre [Not Recovered/Not Resolved]
  - Dysphagia [Not Recovered/Not Resolved]
  - Urticaria [Recovered/Resolved]
  - Bacterial infection [Recovered/Resolved]

NARRATIVE: CASE EVENT DATE: 2000
